FAERS Safety Report 8516229-7 (Version None)
Quarter: 2012Q3

REPORT INFORMATION
  Report Type: 
  Country: None (occurrence: None)
  Receive Date: 20120717
  Receipt Date: 20120705
  Transmission Date: 20120928
  Serious: Yes (Hospitalization, Other)
  Sender: FDA-Public Use
  Company Number: JP-FRI-1000031257

PATIENT
  Sex: Male

DRUGS (10)
  1. PLETAL [Concomitant]
     Dosage: 1 DF
  2. MUCODYNE [Concomitant]
     Dosage: 3 DF
  3. LENDEM [Concomitant]
     Dosage: 1 DF
  4. MEMANTINE HCL [Suspect]
     Indication: DEMENTIA ALZHEIMER'S TYPE
     Dosage: 5 MG
     Route: 048
     Dates: start: 20120322, end: 20120601
  5. OLMESARTAN MEDOXOMIL [Concomitant]
     Dosage: 20 MG
     Dates: end: 20120601
  6. MUCOSTA [Concomitant]
     Dosage: 3 DF
  7. LOSARTAN POTASSIUM AND HYDROCHLOROTHIAZIDE [Concomitant]
     Dosage: 1 DF
     Dates: start: 20120602
  8. SYMMETREL [Concomitant]
     Dosage: 2 DF
  9. NATEGLINIDE [Concomitant]
     Dosage: 3 DF
  10. MAGMITT [Concomitant]
     Dosage: 2 DF

REACTIONS (1)
  - RENAL IMPAIRMENT [None]
